FAERS Safety Report 8865884 (Version 1)
Quarter: 2012Q4

REPORT INFORMATION
  Report Type: Report from Study
  Country: US (occurrence: US)
  Receive Date: 20121025
  Receipt Date: 20121025
  Transmission Date: 20130627
  Serious: No
  Sender: FDA-Public Use
  Company Number: US-ABBOTT-12P-163-0921321-00

PATIENT
  Sex: Female

DRUGS (3)
  1. LUPRON DEPOT 3.75 MG [Suspect]
     Indication: ENDOMETRIOSIS
     Dates: start: 201112, end: 201201
  2. LUPRON DEPOT 3.75 MG [Suspect]
  3. LUPRON DEPOT [Suspect]
     Indication: ENDOMETRIOSIS
     Dates: start: 201201

REACTIONS (4)
  - Myalgia [Unknown]
  - Arthralgia [Unknown]
  - Depressed mood [Unknown]
  - Drug ineffective [Unknown]
